FAERS Safety Report 15741788 (Version 1)
Quarter: 2018Q4

REPORT INFORMATION
  Report Type: Spontaneous
  Country: US (occurrence: US)
  Receive Date: 20181219
  Receipt Date: 20181219
  Transmission Date: 20190205
  Serious: No
  Sender: FDA-Public Use
  Company Number: US-AKRON, INC.-2060394

PATIENT
  Age: 79 Year
  Sex: Male

DRUGS (2)
  1. DORZOLAMIDE HCL TIMOLOL MALEATE SOLUTION [Suspect]
     Active Substance: DORZOLAMIDE HYDROCHLORIDE\TIMOLOL MALEATE
     Route: 047
     Dates: start: 20171017
  2. TRAVATAN [Concomitant]
     Active Substance: TRAVOPROST

REACTIONS (4)
  - Paraesthesia [Not Recovered/Not Resolved]
  - Skin laxity [Unknown]
  - Pollakiuria [Unknown]
  - Hypoaesthesia [Not Recovered/Not Resolved]
